FAERS Safety Report 14807871 (Version 1)
Quarter: 2018Q2

REPORT INFORMATION
  Report Type: Spontaneous
  Country: US (occurrence: US)
  Receive Date: 20180425
  Receipt Date: 20180425
  Transmission Date: 20180711
  Serious: Yes (Other)
  Sender: FDA-Public Use
  Company Number: US-FRESENIUS KABI-FK201804907

PATIENT
  Age: 50 Year
  Sex: Female

DRUGS (1)
  1. ONDANSETRON (MANUFACTURER UNKNOWN) [Suspect]
     Active Substance: ONDANSETRON
     Indication: NAUSEA
     Route: 042

REACTIONS (2)
  - Torsade de pointes [Unknown]
  - Drug administration error [Unknown]
